FAERS Safety Report 13581423 (Version 1)
Quarter: 2017Q2

REPORT INFORMATION
  Report Type: Spontaneous
  Country: FR (occurrence: FR)
  Receive Date: 20170525
  Receipt Date: 20170525
  Transmission Date: 20170830
  Serious: Yes (Congenital Anomaly, Other)
  Sender: FDA-Public Use
  Company Number: FR-GLAXOSMITHKLINE-FR2017GSK075830

PATIENT
  Age: 0 Year
  Sex: Female
  Weight: 2.62 kg

DRUGS (6)
  1. TEGRETOL [Suspect]
     Active Substance: CARBAMAZEPINE
     Indication: EPILEPSY
     Dosage: UNK
     Route: 064
     Dates: end: 20140807
  2. LAMICTAL [Suspect]
     Active Substance: LAMOTRIGINE
     Indication: EPILEPSY
     Dosage: UNK
     Route: 064
     Dates: start: 20140320, end: 20140807
  3. GARDENAL [Suspect]
     Active Substance: PHENOBARBITAL
     Indication: EPILEPSY
     Dosage: 100 MG, QD
     Route: 064
     Dates: start: 20140319, end: 20140807
  4. FOLIC ACID. [Concomitant]
     Active Substance: FOLIC ACID
     Route: 064
  5. URBANYL [Suspect]
     Active Substance: CLOBAZAM
     Indication: EPILEPSY
     Dosage: 20 MG, BID
     Route: 064
     Dates: end: 201403
  6. RIVOTRIL [Suspect]
     Active Substance: CLONAZEPAM
     Indication: EPILEPSY
     Dosage: 2 MG, Z
     Route: 064
     Dates: start: 201403, end: 20140807

REACTIONS (4)
  - Premature baby [Recovered/Resolved]
  - Tremor [Recovered/Resolved]
  - Foetal exposure during pregnancy [Unknown]
  - Congenital megaureter [Not Recovered/Not Resolved]

NARRATIVE: CASE EVENT DATE: 201408
